FAERS Safety Report 6714423-9 (Version None)
Quarter: 2010Q2

REPORT INFORMATION
  Report Type: 
  Country: None (occurrence: None)
  Receive Date: 20100506
  Receipt Date: 20100426
  Transmission Date: 20101027
  Serious: Yes (Other)
  Sender: FDA-Public Use
  Company Number: MW-ABBOTT-10P-100-0641385-00

PATIENT
  Age: 21 Year
  Sex: Female

DRUGS (2)
  1. ALUVIA TABLETS [Suspect]
     Indication: PROPHYLAXIS AGAINST HIV INFECTION
     Route: 048
     Dates: start: 20090305
  2. COMBIVIR [Concomitant]
     Indication: PROPHYLAXIS AGAINST HIV INFECTION
     Route: 048
     Dates: start: 20090305

REACTIONS (1)
  - STILLBIRTH [None]
